FAERS Safety Report 10779980 (Version 1)
Quarter: 2015Q1

REPORT INFORMATION
  Report Type: Spontaneous
  Country: PL (occurrence: PL)
  Receive Date: 20150210
  Receipt Date: 20150210
  Transmission Date: 20150721
  Serious: Yes (Hospitalization)
  Sender: FDA-Public Use
  Company Number: PHHY2015PL013434

PATIENT
  Age: 24 Year
  Sex: Male

DRUGS (3)
  1. OPIPRAMOL [Suspect]
     Active Substance: OPIPRAMOL
     Indication: PRODUCT USED FOR UNKNOWN INDICATION
     Route: 065
  2. TRAMADOL [Suspect]
     Active Substance: TRAMADOL
     Indication: PRODUCT USED FOR UNKNOWN INDICATION
     Route: 065
  3. CLONAZEPAM. [Suspect]
     Active Substance: CLONAZEPAM
     Indication: PRODUCT USED FOR UNKNOWN INDICATION
     Route: 065

REACTIONS (16)
  - Hyperhidrosis [Unknown]
  - Weight decreased [Unknown]
  - Haemorrhage subcutaneous [Unknown]
  - Subcutaneous abscess [Unknown]
  - Chronic papillomatous dermatitis [Unknown]
  - Body temperature fluctuation [Unknown]
  - Tachycardia [Unknown]
  - Myalgia [Unknown]
  - Hypersomnia [Unknown]
  - Insomnia [Unknown]
  - Skin lesion [Recovering/Resolving]
  - Agitation [Unknown]
  - Skin necrosis [Unknown]
  - Skin ulcer [Unknown]
  - Fatigue [Unknown]
  - Wrong technique in drug usage process [Unknown]
